FAERS Safety Report 12452823 (Version 1)
Quarter: 2016Q2

REPORT INFORMATION
  Report Type: Spontaneous
  Country: GB (occurrence: GB)
  Receive Date: 20160609
  Receipt Date: 20160609
  Transmission Date: 20160815
  Serious: Yes (Disabling)
  Sender: FDA-Public Use
  Company Number: GB-TEVA-665868ACC

PATIENT
  Age: 49 Year
  Sex: Male
  Weight: 80 kg

DRUGS (3)
  1. NEFOPAM [Concomitant]
     Active Substance: NEFOPAM
     Dosage: [07:30-1 TABLETS][13:00-1 TABLETS][17:30-1 TABL...
     Dates: start: 20151111, end: 20160518
  2. METOCLOPRAMIDE. [Suspect]
     Active Substance: METOCLOPRAMIDE
     Dates: start: 20160523
  3. FLUTICASONE FUROATE [Concomitant]
     Active Substance: FLUTICASONE FUROATE
     Dosage: 2 SPRAYS EACH NOSTRIL
     Route: 045
     Dates: start: 20160429

REACTIONS (1)
  - Malaise [Unknown]

NARRATIVE: CASE EVENT DATE: 20160523
